FAERS Safety Report 16020947 (Version 2)
Quarter: 2019Q2

REPORT INFORMATION
  Report Type: Spontaneous
  Country: DE (occurrence: DE)
  Receive Date: 20190301
  Receipt Date: 20190412
  Transmission Date: 20190711
  Serious: Yes (Other)
  Sender: FDA-Public Use
  Company Number: DE-ROCHE-2270847

PATIENT

DRUGS (3)
  1. HEMLIBRA [Suspect]
     Active Substance: EMICIZUMAB-KXWH
     Route: 058
  2. HEMLIBRA [Suspect]
     Active Substance: EMICIZUMAB-KXWH
     Indication: FACTOR VIII DEFICIENCY
     Route: 058
     Dates: start: 201804
  3. FACTOR VII [Concomitant]
     Active Substance: COAGULATION FACTOR VII HUMAN

REACTIONS (5)
  - Anti factor VIII antibody increased [Unknown]
  - Device breakage [Unknown]
  - Post procedural haemorrhage [Unknown]
  - Haematoma [Unknown]
  - Injury [Unknown]

NARRATIVE: CASE EVENT DATE: 201805
